FAERS Safety Report 6642378-4 (Version None)
Quarter: 2010Q1

REPORT INFORMATION
  Report Type: 
  Country: None (occurrence: None)
  Receive Date: 20100319
  Receipt Date: 20100308
  Transmission Date: 20100710
  Serious: Yes (Other)
  Sender: FDA-Public Use
  Company Number: JP-ROCHE-690569

PATIENT
  Age: 67 Year
  Sex: Female

DRUGS (4)
  1. ALL-TRANS-RETINOIC ACID [Suspect]
     Route: 065
  2. ALL-TRANS-RETINOIC ACID [Suspect]
     Route: 065
  3. IDARUBICIN HCL [Concomitant]
  4. CYTARABINE [Concomitant]

REACTIONS (1)
  - GANGRENE [None]
